FAERS Safety Report 6000344-6 (Version None)
Quarter: 2008Q4

REPORT INFORMATION
  Report Type: 
  Country: None (occurrence: None)
  Receive Date: 20081215
  Receipt Date: 20081102
  Transmission Date: 20090506
  Serious: No
  Sender: FDA-Public Use
  Company Number: US-BAYER-200814283BCC

PATIENT
  Age: 21 Year
  Sex: Female
  Weight: 66 kg

DRUGS (4)
  1. ALEVE [Suspect]
     Indication: TOOTHACHE
     Dosage: TOTAL DAILY DOSE: 220 MG  UNIT DOSE: 220 MG
     Dates: start: 20081101, end: 20081101
  2. ALEVE [Suspect]
  3. TYLENOL (CAPLET) [Suspect]
     Indication: TOOTHACHE
     Dosage: UNIT DOSE: 1 DF
     Dates: start: 20081101, end: 20081101
  4. TYLENOL (CAPLET) [Suspect]

REACTIONS (2)
  - LIP SWELLING [None]
  - PREGNANCY [None]
